FAERS Safety Report 24917544 (Version 1)
Quarter: 2025Q1

REPORT INFORMATION
  Report Type: Spontaneous
  Country: US (occurrence: US)
  Receive Date: 20250203
  Receipt Date: 20250203
  Transmission Date: 20250409
  Serious: Yes (Other)
  Sender: SANOFI AVENTIS
  Company Number: US-SA-2025SA029588

PATIENT
  Age: 69 Year
  Sex: Female

DRUGS (1)
  1. DUPIXENT [Suspect]
     Active Substance: DUPILUMAB
     Indication: Dermatitis atopic
     Route: 058
     Dates: start: 202411

REACTIONS (4)
  - Pneumonia [Unknown]
  - Nausea [Unknown]
  - Dizziness [Unknown]
  - Eczema [Unknown]

NARRATIVE: CASE EVENT DATE: 20240101
